FAERS Safety Report 5234515-3 (Version None)
Quarter: 2007Q1

REPORT INFORMATION
  Report Type: 
  Country: None (occurrence: None)
  Receive Date: 20070208
  Receipt Date: 20070208
  Transmission Date: 20070707
  Serious: Yes (Life-Threatening, Hospitalization)
  Sender: FDA-Public Use
  Company Number: None

PATIENT
  Age: 55 Year
  Sex: Female
  Weight: 55 kg

DRUGS (8)
  1. CYCLOPHOSPHAMIDE [Suspect]
     Indication: NON-SMALL CELL LUNG CANCER STAGE IV
     Dosage: SEE SAE REPORT 2/5/07
  2. ALLOGENEIC LUNG CA/CD40L VACCINE [Suspect]
     Indication: METASTASES TO BONE
     Dosage: SEE SAE REPORT 2/5/07
  3. ALLOGENEIC LUNG CA/CD40L VACCINE [Suspect]
     Indication: METASTASES TO LIVER
     Dosage: SEE SAE REPORT 2/5/07
  4. VICODIN [Concomitant]
  5. OXYCONTIN [Concomitant]
  6. FOLIC ACID [Concomitant]
  7. DUONEB [Concomitant]
  8. ARANESP [Concomitant]

REACTIONS (18)
  - BREAST SWELLING [None]
  - DISEASE PROGRESSION [None]
  - DRUG INEFFECTIVE [None]
  - FACE OEDEMA [None]
  - FATIGUE [None]
  - HEPATIC MASS [None]
  - HILAR LYMPHADENOPATHY [None]
  - HYPONATRAEMIA [None]
  - HYPOXIA [None]
  - JUGULAR VEIN DISTENSION [None]
  - MEDIASTINAL DISORDER [None]
  - MENTAL STATUS CHANGES [None]
  - NAUSEA [None]
  - ORAL INTAKE REDUCED [None]
  - PLEURAL EFFUSION [None]
  - PNEUMONIA [None]
  - RADIATION INJURY [None]
  - SUPERIOR VENA CAVAL OCCLUSION [None]
